FAERS Safety Report 4701421-X (Version None)
Quarter: 2005Q2

REPORT INFORMATION
  Report Type: 
  Country: None (occurrence: None)
  Receive Date: 20050628
  Receipt Date: 20050502
  Transmission Date: 20051028
  Serious: Yes (Death, Hospitalization)
  Sender: FDA-Public Use
  Company Number: DE-ROCHE-403645

PATIENT
  Sex: Male

DRUGS (2)
  1. PEGASYS [Suspect]
     Route: 058
  2. REBETOL [Suspect]
     Route: 048

REACTIONS (3)
  - ARTERIAL INJURY [None]
  - ENDOCARDITIS [None]
  - PANCREATITIS NECROTISING [None]
